FAERS Safety Report 9285940 (Version 1)
Quarter: 2013Q2

REPORT INFORMATION
  Report Type: Report from Study
  Country: ZA (occurrence: ZA)
  Receive Date: 20130513
  Receipt Date: 20130513
  Transmission Date: 20140414
  Serious: Yes (Hospitalization)
  Sender: FDA-Public Use
  Company Number: ZA-ROCHE-1223399

PATIENT
  Sex: Male

DRUGS (4)
  1. RECORMON [Suspect]
     Indication: PRODUCT USED FOR UNKNOWN INDICATION
     Route: 065
     Dates: start: 20091118
  2. RECORMON [Suspect]
     Route: 058
     Dates: start: 201102
  3. MIRCERA [Suspect]
     Indication: PRODUCT USED FOR UNKNOWN INDICATION
     Route: 065
     Dates: start: 201005
  4. VENOFER [Concomitant]
     Route: 042

REACTIONS (1)
  - Cardiac disorder [Unknown]
